FAERS Safety Report 8320065-4 (Version None)
Quarter: 2012Q2

REPORT INFORMATION
  Report Type: 
  Country: None (occurrence: None)
  Receive Date: 20120427
  Receipt Date: 20120419
  Transmission Date: 20120825
  Serious: Yes (Other)
  Sender: FDA-Public Use
  Company Number: CA-AMGEN-CANSP2011025965

PATIENT
  Age: 54 Year
  Sex: Male
  Weight: 70 kg

DRUGS (9)
  1. ENBREL [Suspect]
     Indication: PSORIATIC ARTHROPATHY
     Dosage: 50 MG, QWK
     Route: 058
     Dates: start: 20091211
  2. AMERGE [Concomitant]
     Dosage: UNK
  3. METHOTREXATE [Concomitant]
     Dosage: UNK
  4. SINGULAIR [Concomitant]
     Dosage: 2 UNK, UNK
  5. CELEBREX [Concomitant]
     Dosage: 200 MG, QD
     Route: 048
  6. MORPHINE [Concomitant]
     Dosage: UNK
  7. MULTI-VITAMINS [Concomitant]
  8. ACETAMINOPHEN [Concomitant]
     Dosage: 1 G, QD
  9. PINDOLOL [Concomitant]
     Dosage: 10 MG, BID

REACTIONS (7)
  - TONSILLITIS [None]
  - FATIGUE [None]
  - CELLULITIS [None]
  - SINUSITIS [None]
  - DENTAL CARE [None]
  - ARTHRALGIA [None]
  - JOINT STIFFNESS [None]
